FAERS Safety Report 4487358-2 (Version None)
Quarter: 2004Q4

REPORT INFORMATION
  Report Type: 
  Country: None (occurrence: None)
  Receive Date: 20041027
  Receipt Date: 20041020
  Transmission Date: 20050328
  Serious: Yes (Hospitalization)
  Sender: FDA-Public Use
  Company Number: US-MERCK-0410USA03306

PATIENT
  Age: 39 Year
  Sex: Male

DRUGS (3)
  1. CRIXIVAN [Suspect]
     Indication: HIV INFECTION
     Route: 048
     Dates: start: 19981201
  2. LAMIVUDINE AND ZIDOVUDINE [Suspect]
     Indication: HIV INFECTION
     Route: 065
     Dates: start: 19981201
  3. SULFAMETHOXAZOLE AND TRIMETHOPRIM [Suspect]
     Route: 065
     Dates: start: 19981201

REACTIONS (9)
  - BLOOD CULTURE POSITIVE [None]
  - CYTOMEGALOVIRUS INFECTION [None]
  - ENTEROVESICAL FISTULA [None]
  - GASTROINTESTINAL NECROSIS [None]
  - GRANULOMA [None]
  - HISTOPLASMOSIS [None]
  - HISTOPLASMOSIS DISSEMINATED [None]
  - IMMUNE RECONSTITUTION SYNDROME [None]
  - MUCOSAL ULCERATION [None]
